FAERS Safety Report 6391549-3 (Version None)
Quarter: 2009Q4

REPORT INFORMATION
  Report Type: 
  Country: None (occurrence: None)
  Receive Date: 20091007
  Receipt Date: 20090929
  Transmission Date: 20100525
  Serious: Yes (Hospitalization)
  Sender: FDA-Public Use
  Company Number: US-ASTRAZENECA-2009SE16325

PATIENT
  Age: 65 Year
  Sex: Male
  Weight: 84.4 kg

DRUGS (1)
  1. CRESTOR [Suspect]
     Indication: HYPERCHOLESTEROLAEMIA
     Route: 048
     Dates: start: 20090715, end: 20090827

REACTIONS (2)
  - ASTHENIA [None]
  - DYSSTASIA [None]
